FAERS Safety Report 17005643 (Version 3)
Quarter: 2019Q4

REPORT INFORMATION
  Report Type: Report from Study
  Country: None (occurrence: JP)
  Receive Date: 20191107
  Receipt Date: 20191209
  Transmission Date: 20200122
  Serious: Yes (Hospitalization)
  Sender: FDA-Public Use
  Company Number: JP-ABBVIE-19P-087-2986073-00

PATIENT
  Age: 62 Year
  Sex: Female
  Weight: 36.9 kg

DRUGS (30)
  1. ADOFEED PAP [Concomitant]
     Active Substance: FLURBIPROFEN
     Indication: EPICONDYLITIS
     Route: 061
     Dates: start: 20181116
  2. OXYCONTIN TR [Concomitant]
     Active Substance: OXYCODONE HYDROCHLORIDE
     Indication: CERVIX CARCINOMA
     Dosage: 10-40 MG
     Route: 048
     Dates: start: 20190522
  3. NEXIUM [Concomitant]
     Active Substance: ESOMEPRAZOLE MAGNESIUM
     Indication: PROPHYLAXIS AGAINST GASTROINTESTINAL ULCER
     Route: 048
     Dates: start: 20170703
  4. PRAMIEL [Concomitant]
     Indication: NAUSEA
     Route: 048
     Dates: start: 20190613
  5. CALONAL [Concomitant]
     Active Substance: ACETAMINOPHEN
     Indication: INFLUENZA
     Route: 048
     Dates: start: 20190207, end: 20190207
  6. CALONAL [Concomitant]
     Active Substance: ACETAMINOPHEN
     Indication: CERVIX CARCINOMA
     Route: 048
     Dates: start: 20190509
  7. ZYPREXA [Concomitant]
     Active Substance: OLANZAPINE
     Indication: NAUSEA
     Route: 048
     Dates: start: 20190613
  8. VENETOCLAX. [Suspect]
     Active Substance: VENETOCLAX
     Indication: PLASMA CELL MYELOMA
     Route: 048
     Dates: start: 20181119, end: 20190925
  9. DEXAMETHASONE. [Suspect]
     Active Substance: DEXAMETHASONE
     Route: 048
     Dates: start: 20191022, end: 20191028
  10. BROTIZOLAM [Concomitant]
     Active Substance: BROTIZOLAM
     Indication: INSOMNIA
     Route: 048
     Dates: start: 20180129
  11. VENETOCLAX. [Suspect]
     Active Substance: VENETOCLAX
     Route: 048
     Dates: start: 20190925, end: 20191029
  12. DEXAMETHASONE. [Suspect]
     Active Substance: DEXAMETHASONE
     Route: 048
     Dates: start: 20190927, end: 20191003
  13. CALFINA [Concomitant]
     Active Substance: ALFACALCIDOL
     Indication: OSTEOPOROSIS
     Route: 048
     Dates: start: 20180725
  14. LOXONIN TAPE [Concomitant]
     Active Substance: LOXOPROFEN SODIUM DIHYDRATE
     Indication: EPICONDYLITIS
     Route: 061
     Dates: start: 20190215
  15. LYRICA [Concomitant]
     Active Substance: PREGABALIN
     Indication: CERVIX CARCINOMA
     Route: 048
     Dates: start: 20190522
  16. MAGNESIUM OXIDE. [Concomitant]
     Active Substance: MAGNESIUM OXIDE
     Indication: PROPHYLAXIS
     Dosage: 990-1980 MG
     Route: 048
     Dates: start: 20190524
  17. DEXAMETHASONE. [Suspect]
     Active Substance: DEXAMETHASONE
     Indication: PLASMA CELL MYELOMA
     Route: 048
     Dates: start: 20181119, end: 20190107
  18. DEXAMETHASONE. [Suspect]
     Active Substance: DEXAMETHASONE
     Route: 048
     Dates: start: 20190115, end: 20190527
  19. AMLODIPINE [Concomitant]
     Active Substance: AMLODIPINE BESYLATE
     Indication: HYPERTENSION
     Route: 048
     Dates: start: 20161219
  20. BFLUID [Concomitant]
     Active Substance: AMINO ACIDS\DEXTROSE\ELECTROLYTES NOS\VITAMINS
     Indication: ELECTROLYTE SUBSTITUTION THERAPY
     Route: 041
     Dates: start: 20190613, end: 20190615
  21. BFLUID [Concomitant]
     Active Substance: AMINO ACIDS\DEXTROSE\ELECTROLYTES NOS\VITAMINS
     Indication: DECREASED APPETITE
     Dosage: 300-500 ML
     Route: 041
     Dates: start: 20190609
  22. LOPERAMIDE HYDROCHLORIDE. [Concomitant]
     Active Substance: LOPERAMIDE HYDROCHLORIDE
     Indication: DIARRHOEA
     Route: 048
     Dates: start: 20190624
  23. VENETOCLAX. [Suspect]
     Active Substance: VENETOCLAX
     Route: 048
     Dates: start: 20191121
  24. DEXAMETHASONE. [Suspect]
     Active Substance: DEXAMETHASONE
     Route: 048
     Dates: start: 20190729, end: 20190805
  25. AZ COMBINATION FINE GRANULES FOR GARGLE [Concomitant]
     Indication: PAIN PROPHYLAXIS
     Route: 048
     Dates: start: 20160104
  26. HYALEIN OPHTHALIC SOLUTION [Concomitant]
     Indication: DRY EYE
     Dosage: PROPER DOSE
     Route: 047
     Dates: start: 20190408
  27. OXINORM [Concomitant]
     Indication: CERVIX CARCINOMA
     Dosage: 2.5-10 MG
     Route: 048
     Dates: start: 20190522
  28. SOLDEM 3AG [Concomitant]
     Indication: DECREASED APPETITE
     Route: 041
     Dates: start: 20190701
  29. METOCLOPRAMIDE HYDROCHLORIDE. [Concomitant]
     Active Substance: METOCLOPRAMIDE HYDROCHLORIDE
     Indication: DECREASED APPETITE
     Route: 041
     Dates: start: 20190701
  30. ACICLOVIR [Concomitant]
     Active Substance: ACYCLOVIR
     Indication: INFECTION PROPHYLAXIS
     Route: 048
     Dates: start: 20150615

REACTIONS (1)
  - Pneumonia [Recovered/Resolved]

NARRATIVE: CASE EVENT DATE: 20191031
